FAERS Safety Report 10149075 (Version 1)
Quarter: 2014Q2

REPORT INFORMATION
  Report Type: Spontaneous
  Country: US (occurrence: None)
  Receive Date: 20140430
  Receipt Date: 20140430
  Transmission Date: 20141212
  Serious: Yes (Other)
  Sender: FDA-Public Use
  Company Number: 001718568A

PATIENT
  Age: 57 Year
  Sex: Female

DRUGS (5)
  1. PROACTIV + SKIN SMOOTHING EXFOLIATOR [Suspect]
     Indication: ACNE
     Dosage: ONCE DAILY DERMAL
     Route: 023
     Dates: start: 20140404
  2. PROACTIV + PORE TARGETING TREATMENT [Suspect]
     Indication: ACNE
     Dosage: ONCE DAILY DERMAL
     Route: 023
     Dates: start: 20140404
  3. PROACTIV +COMPLEXION PERFECTING HYDRATOR [Suspect]
     Indication: ACNE
     Dosage: ONCE DAILY DERMAL
     Route: 023
     Dates: start: 20140404
  4. PROACTIV+ MARK FADING PADS [Suspect]
     Indication: ACNE
     Dosage: ONCE DAILY DERMAL
     Route: 023
     Dates: start: 20140404
  5. PROACTIV + SKIN PURIFYING MASK [Suspect]
     Indication: ACNE
     Dosage: ONCE DAILY DERMAL
     Route: 023
     Dates: start: 20140404

REACTIONS (3)
  - Swelling face [None]
  - Dysphagia [None]
  - Pharyngeal oedema [None]
